FAERS Safety Report 7939714-5 (Version None)
Quarter: 2011Q4

REPORT INFORMATION
  Report Type: 
  Country: None (occurrence: None)
  Receive Date: 20111125
  Receipt Date: 20111124
  Transmission Date: 20120403
  Serious: Yes (Other)
  Sender: FDA-Public Use
  Company Number: ES-ABBOTT-11P-144-0715341-00

PATIENT
  Sex: Female

DRUGS (2)
  1. KALETRA [Suspect]
     Indication: HIV INFECTION
     Dosage: 800/200 MG
     Route: 048
     Dates: start: 20110104
  2. TRUVADA [Concomitant]
     Indication: HIV INFECTION
     Dosage: 245/200MG
     Route: 048
     Dates: start: 20110104

REACTIONS (2)
  - ABORTION LATE [None]
  - PREMATURE RUPTURE OF MEMBRANES [None]
